FAERS Safety Report 25917252 (Version 1)
Quarter: 2025Q4

REPORT INFORMATION
  Report Type: Report from Study
  Country: EU (occurrence: None)
  Receive Date: 20251014
  Receipt Date: 20251014
  Transmission Date: 20260118
  Serious: Yes (Hospitalization, Other)
  Sender: UCB
  Company Number: EU-UCBSA-2024014801

PATIENT

DRUGS (2)
  1. CERTOLIZUMAB PEGOL [Suspect]
     Active Substance: CERTOLIZUMAB PEGOL
     Indication: Rheumatoid arthritis
     Dosage: 200 MILLIGRAM, EV 3 WEEKS
  2. METHOTREXATE [Concomitant]
     Active Substance: METHOTREXATE
     Indication: Product used for unknown indication
     Dosage: 17.5 MILLIGRAM

REACTIONS (9)
  - Intervertebral disc protrusion [Recovered/Resolved]
  - Intervertebral disc operation [Recovered/Resolved]
  - Liver disorder [Unknown]
  - Anaemia [Unknown]
  - Urinary tract obstruction [Not Recovered/Not Resolved]
  - Peripheral arterial occlusive disease [Recovered/Resolved]
  - Hepatic enzyme increased [Not Recovered/Not Resolved]
  - Bladder trabeculation [Not Recovered/Not Resolved]
  - Off label use [Unknown]
